FAERS Safety Report 23539071 (Version 1)
Quarter: 2024Q1

REPORT INFORMATION
  Report Type: Spontaneous
  Country: US (occurrence: US)
  Receive Date: 20240219
  Receipt Date: 20240219
  Transmission Date: 20240409
  Serious: No
  Sender: FDA-Public Use
  Company Number: US-CTI BIOPHARMA-2023US04337

PATIENT

DRUGS (2)
  1. VONJO [Suspect]
     Active Substance: PACRITINIB
     Indication: Myelofibrosis
     Dosage: 200 MG, BID
     Route: 048
     Dates: start: 20230619
  2. MOMELOTINIB [Concomitant]
     Active Substance: MOMELOTINIB

REACTIONS (6)
  - Constipation [Unknown]
  - Infrequent bowel movements [Unknown]
  - Fatigue [Unknown]
  - Drug ineffective [Unknown]
  - Platelet count decreased [Unknown]
  - Dizziness [Unknown]
